FAERS Safety Report 7997629-0 (Version None)
Quarter: 2011Q4

REPORT INFORMATION
  Report Type: 
  Country: None (occurrence: None)
  Receive Date: 20111221
  Receipt Date: 20111220
  Transmission Date: 20120403
  Serious: Yes (Other)
  Sender: FDA-Public Use
  Company Number: NL-SP-2011-12427

PATIENT
  Sex: Male

DRUGS (2)
  1. TICE BCG [Suspect]
     Indication: BLADDER CANCER
     Dosage: NOT REPORTED
     Route: 043
  2. CHEMOTHERAPY [Suspect]
     Dosage: SINGLE DOSE POST TURBT

REACTIONS (1)
  - ADVERSE EVENT [None]
